FAERS Safety Report 21007809 (Version 5)
Quarter: 2022Q3

REPORT INFORMATION
  Report Type: Report from Study
  Country: US (occurrence: US)
  Receive Date: 20220627
  Receipt Date: 20220722
  Transmission Date: 20221027
  Serious: No
  Sender: FDA-Public Use
  Company Number: US-NOVARTISTESTPH-NVSC2022US145656

PATIENT
  Sex: Female

DRUGS (4)
  1. ENTRESTO [Suspect]
     Active Substance: SACUBITRIL\VALSARTAN
     Indication: Product used for unknown indication
     Dosage: 1 DOSAGE FORM, BID (24/26MG)
     Route: 048
  2. ENTRESTO [Suspect]
     Active Substance: SACUBITRIL\VALSARTAN
     Dosage: 1 DOSAGE FORM, BID (49/51MG)
     Route: 065
  3. ENTRESTO [Suspect]
     Active Substance: SACUBITRIL\VALSARTAN
     Route: 048
  4. ENTRESTO [Suspect]
     Active Substance: SACUBITRIL\VALSARTAN
     Route: 048

REACTIONS (10)
  - Hyperhidrosis [Unknown]
  - Poor quality sleep [Not Recovered/Not Resolved]
  - Insomnia [Recovering/Resolving]
  - Muscle tightness [Recovered/Resolved]
  - Epistaxis [Unknown]
  - Dizziness postural [Recovered/Resolved]
  - Hypersensitivity [Unknown]
  - Renal function test abnormal [Unknown]
  - Hypotension [Not Recovered/Not Resolved]
  - Fatigue [Recovering/Resolving]
